FAERS Safety Report 9330648 (Version 1)
Quarter: 2013Q2

REPORT INFORMATION
  Report Type: Spontaneous
  Country: US (occurrence: None)
  Receive Date: 20130604
  Receipt Date: 20130604
  Transmission Date: 20140414
  Serious: Yes (Life-Threatening)
  Sender: FDA-Public Use
  Company Number: None

PATIENT
  Age: 31 Year
  Sex: Female
  Weight: 50 kg

DRUGS (2)
  1. PROVIGIL [Suspect]
     Indication: FATIGUE
     Dosage: 100MG EACH PILLS (UP TO 4 PILLS)
     Route: 048
     Dates: start: 20130503, end: 20130524
  2. PROVIGIL [Suspect]
     Indication: MULTIPLE SCLEROSIS
     Dosage: 100MG EACH PILLS (UP TO 4 PILLS)
     Route: 048
     Dates: start: 20130503, end: 20130524

REACTIONS (11)
  - Crying [None]
  - Nervousness [None]
  - Anxiety [None]
  - Thinking abnormal [None]
  - Hallucination, auditory [None]
  - Intentional self-injury [None]
  - Depression [None]
  - Social avoidant behaviour [None]
  - Apathy [None]
  - Suicidal ideation [None]
  - Abnormal behaviour [None]
